FAERS Safety Report 18775731 (Version 1)
Quarter: 2021Q1

REPORT INFORMATION
  Report Type: Report from Study
  Country: US (occurrence: US)
  Receive Date: 20210122
  Receipt Date: 20210122
  Transmission Date: 20210419
  Serious: Yes (Hospitalization)
  Sender: FDA-Public Use
  Company Number: US-JNJFOC-20201255672

PATIENT
  Age: 77 Year
  Sex: Female
  Weight: 49.94 kg

DRUGS (3)
  1. ELIQUIS [Concomitant]
     Active Substance: APIXABAN
  2. OPSUMIT [Suspect]
     Active Substance: MACITENTAN
     Indication: PULMONARY ARTERIAL HYPERTENSION
     Route: 048
     Dates: end: 202101
  3. ADEMPAS [Concomitant]
     Active Substance: RIOCIGUAT

REACTIONS (6)
  - Depression [Unknown]
  - Dyspnoea [Recovering/Resolving]
  - Fluid retention [Recovering/Resolving]
  - Nausea [Unknown]
  - Retching [Unknown]
  - Pain [Recovering/Resolving]

NARRATIVE: CASE EVENT DATE: 20201230
